FAERS Safety Report 12278972 (Version 1)
Quarter: 2016Q2

REPORT INFORMATION
  Report Type: Spontaneous
  Country: FR (occurrence: FR)
  Receive Date: 20160418
  Receipt Date: 20160418
  Transmission Date: 20160815
  Serious: Yes (Other)
  Sender: FDA-Public Use
  Company Number: FR-VIIV HEALTHCARE LIMITED-FR2016GSK030656

PATIENT
  Age: 28 Year
  Weight: 60 kg

DRUGS (4)
  1. UVEDOSE [Concomitant]
     Active Substance: CHOLECALCIFEROL
     Indication: VITAMIN SUPPLEMENTATION
     Dosage: EVERY 3 MONTHS
     Route: 048
  2. TRIUMEQ [Suspect]
     Active Substance: ABACAVIR SULFATE\DOLUTEGRAVIR SODIUM\LAMIVUDINE
     Indication: HIV INFECTION
     Dosage: 1 DF, 1D
     Route: 048
     Dates: start: 20151026, end: 20160301
  3. TIVICAY [Suspect]
     Active Substance: DOLUTEGRAVIR SODIUM
     Indication: HIV INFECTION
     Dosage: 1 DF, 1D
     Route: 048
     Dates: start: 20150928, end: 201510
  4. TRUVADA [Concomitant]
     Active Substance: EMTRICITABINE\TENOFOVIR DISOPROXIL FUMARATE
     Indication: HIV INFECTION
     Dosage: UNK
     Dates: end: 20151016

REACTIONS (7)
  - Loss of consciousness [Unknown]
  - Anaesthesia [Unknown]
  - Hypersomnia [Not Recovered/Not Resolved]
  - Malaise [Unknown]
  - Muscle contracture [Unknown]
  - Paraesthesia [Unknown]
  - Tremor [Unknown]
